FAERS Safety Report 10334824 (Version 1)
Quarter: 2014Q3

REPORT INFORMATION
  Report Type: Spontaneous
  Country: US (occurrence: None)
  Receive Date: 20140721
  Receipt Date: 20140721
  Transmission Date: 20150326
  Serious: Yes (Hospitalization)
  Sender: FDA-Public Use
  Company Number: US-H14001-14-00231

PATIENT
  Age: 50 Year
  Sex: Female

DRUGS (1)
  1. LITHIUM CARBONATE. [Suspect]
     Active Substance: LITHIUM CARBONATE
     Indication: BIPOLAR DISORDER

REACTIONS (7)
  - Chest pain [None]
  - Arteriospasm coronary [None]
  - Coronary artery disease [None]
  - Hyperthyroidism [None]
  - Atrial tachycardia [None]
  - Electrocardiogram ST segment depression [None]
  - Bundle branch block left [None]
